FAERS Safety Report 6826101-6 (Version None)
Quarter: 2010Q3

REPORT INFORMATION
  Report Type: 
  Country: None (occurrence: None)
  Receive Date: 20100709
  Receipt Date: 20100630
  Transmission Date: 20110219
  Serious: Yes (Life-Threatening, Hospitalization)
  Sender: FDA-Public Use
  Company Number: DE-JNJFOC-20100207202

PATIENT
  Sex: Male
  Weight: 70 kg

DRUGS (5)
  1. REMICADE [Suspect]
     Indication: COLITIS ULCERATIVE
     Dosage: TREATED WITH 2 INFUSIONS
     Route: 042
  2. AZATHIOPRINE [Suspect]
     Indication: COLITIS ULCERATIVE
     Route: 048
  3. GLUCOCORTICOIDS [Concomitant]
  4. CLAVERSAL [Concomitant]
     Indication: COLITIS ULCERATIVE
  5. PREDNISONE [Concomitant]
     Indication: COLITIS ULCERATIVE

REACTIONS (2)
  - ENCEPHALITIS [None]
  - LEUKOPENIA [None]
